FAERS Safety Report 16589814 (Version 1)
Quarter: 2019Q3

REPORT INFORMATION
  Report Type: Other
  Country: US (occurrence: US)
  Receive Date: 20190718
  Receipt Date: 20190718
  Transmission Date: 20191004
  Serious: No
  Sender: FDA-Public Use
  Company Number: US-SWEDISH ORPHAN BIOVITRUM-2019US0986

PATIENT
  Age: 55 Year
  Sex: Female

DRUGS (1)
  1. KINERET [Suspect]
     Active Substance: ANAKINRA
     Indication: VASCULITIS NECROTISING
     Route: 058
     Dates: start: 20190313

REACTIONS (5)
  - Poor quality sleep [Unknown]
  - Injection site vesicles [Unknown]
  - Injection site pain [Unknown]
  - Injection site swelling [Unknown]
  - Off label use [Recovered/Resolved]

NARRATIVE: CASE EVENT DATE: 20190313
